FAERS Safety Report 21609735 (Version 2)
Quarter: 2022Q4

REPORT INFORMATION
  Report Type: Report from Study
  Country: US (occurrence: US)
  Receive Date: 20221117
  Receipt Date: 20221214
  Transmission Date: 20230113
  Serious: Yes (Other)
  Sender: FDA-Public Use
  Company Number: US-BAYER-2022A138818

PATIENT
  Age: 46 Year
  Sex: Male

DRUGS (2)
  1. STIVARGA [Suspect]
     Active Substance: REGORAFENIB
     Indication: Colon cancer
     Dosage: 160 MG, QD, FOR 21 DAYS ON THEN 7 DAYS OFF
     Route: 048
     Dates: start: 20221003
  2. GABAPENTIN [Concomitant]
     Active Substance: GABAPENTIN
     Indication: Neuropathy peripheral
     Dosage: UNK

REACTIONS (9)
  - Neuropathy peripheral [Not Recovered/Not Resolved]
  - Paraesthesia [Not Recovered/Not Resolved]
  - Skin fissures [Recovered/Resolved]
  - Tongue ulceration [Recovered/Resolved]
  - Feeding disorder [Recovered/Resolved]
  - Peripheral swelling [Recovering/Resolving]
  - Rash erythematous [Recovering/Resolving]
  - Dry skin [Recovered/Resolved]
  - Diarrhoea [Not Recovered/Not Resolved]

NARRATIVE: CASE EVENT DATE: 20221004
